FAERS Safety Report 9441359 (Version 1)
Quarter: 2013Q3

REPORT INFORMATION
  Report Type: Spontaneous
  Country: US (occurrence: US)
  Receive Date: 20130805
  Receipt Date: 20130805
  Transmission Date: 20140515
  Serious: No
  Sender: FDA-Public Use
  Company Number: US-TEVA-423849USA

PATIENT
  Age: 17 Year
  Sex: Female
  Weight: 59.02 kg

DRUGS (2)
  1. PLAN B ONE-STEP [Suspect]
     Indication: POST COITAL CONTRACEPTION
     Dosage: 1.5 MILLIGRAM DAILY;
     Route: 048
     Dates: start: 20130707, end: 20130707
  2. PLAN B ONE-STEP [Suspect]
     Dosage: 1.5 MILLIGRAM DAILY;
     Route: 048
     Dates: start: 20130727, end: 20130727

REACTIONS (7)
  - Vaginal discharge [Not Recovered/Not Resolved]
  - Feeling hot [Recovered/Resolved]
  - Nausea [Recovered/Resolved]
  - Menstruation irregular [Recovered/Resolved]
  - Metrorrhagia [Recovered/Resolved]
  - Pelvic pain [Not Recovered/Not Resolved]
  - Breast pain [Not Recovered/Not Resolved]
